FAERS Safety Report 24565798 (Version 4)
Quarter: 2025Q3

REPORT INFORMATION
  Report Type: Spontaneous
  Country: US (occurrence: US)
  Receive Date: 20241030
  Receipt Date: 20250829
  Transmission Date: 20251020
  Serious: Yes (Other)
  Sender: PFIZER
  Company Number: US-PFIZER INC-PV202400140676

PATIENT
  Age: 70 Year
  Sex: Female

DRUGS (2)
  1. XELJANZ XR [Suspect]
     Active Substance: TOFACITINIB CITRATE
  2. AMOXICILLIN [Suspect]
     Active Substance: AMOXICILLIN

REACTIONS (7)
  - Joint arthroplasty [Unknown]
  - Colitis ulcerative [Unknown]
  - Headache [Unknown]
  - Blood oestrogen increased [Unknown]
  - Hot flush [Unknown]
  - Breast enlargement [Unknown]
  - Breast tenderness [Unknown]

NARRATIVE: CASE EVENT DATE: 20250101
